FAERS Safety Report 21731701 (Version 3)
Quarter: 2023Q2

REPORT INFORMATION
  Report Type: Report from Study
  Country: US (occurrence: US)
  Receive Date: 20221215
  Receipt Date: 20230407
  Transmission Date: 20230721
  Serious: No
  Sender: FDA-Public Use
  Company Number: US-ABBVIE-4233082

PATIENT
  Age: 53 Year
  Sex: Female

DRUGS (4)
  1. HUMIRA [Suspect]
     Active Substance: ADALIMUMAB
     Indication: Rheumatoid arthritis
     Route: 058
     Dates: start: 20220715
  2. HUMIRA [Suspect]
     Active Substance: ADALIMUMAB
     Dosage: 2022 LAST ADMIN DATE
     Route: 058
     Dates: start: 202209
  3. HUMIRA [Suspect]
     Active Substance: ADALIMUMAB
     Route: 058
  4. METHOTREXATE [Suspect]
     Active Substance: METHOTREXATE
     Indication: Product used for unknown indication
     Route: 065

REACTIONS (12)
  - Hepatic steatosis [Unknown]
  - Memory impairment [Recovering/Resolving]
  - Therapeutic response shortened [Unknown]
  - Device issue [Not Recovered/Not Resolved]
  - Nodule [Unknown]
  - Arthralgia [Unknown]
  - Mobility decreased [Unknown]
  - COVID-19 [Unknown]
  - Pain [Not Recovered/Not Resolved]
  - Liver function test increased [Unknown]
  - Arthralgia [Unknown]
  - Joint range of motion decreased [Unknown]

NARRATIVE: CASE EVENT DATE: 20221208
